FAERS Safety Report 11404086 (Version 1)
Quarter: 2015Q3

REPORT INFORMATION
  Report Type: Spontaneous
  Country: US (occurrence: None)
  Receive Date: 20150820
  Receipt Date: 20150820
  Transmission Date: 20151125
  Serious: Yes (Disabling)
  Sender: FDA-Public Use
  Company Number: None

PATIENT
  Age: 47 Year
  Sex: Female
  Weight: 92.99 kg

DRUGS (6)
  1. DULOXETINA [Suspect]
     Active Substance: DULOXETINE
     Indication: FIBROMYALGIA
     Dosage: 3 PILLS PER DAY
     Route: 048
     Dates: start: 20150701, end: 20150819
  2. DULOXETINA [Suspect]
     Active Substance: DULOXETINE
     Indication: ARTHRALGIA
     Dosage: 3 PILLS PER DAY
     Route: 048
     Dates: start: 20150701, end: 20150819
  3. OOMEPRAZOLE (PRILOSEC OTC) [Concomitant]
  4. DULOXETINA [Suspect]
     Active Substance: DULOXETINE
     Indication: ANXIETY
     Dosage: 3 PILLS PER DAY
     Route: 048
     Dates: start: 20150701, end: 20150819
  5. SPRINTEC [Concomitant]
     Active Substance: ETHINYL ESTRADIOL\NORGESTIMATE
  6. MULTIV VITAMIN [Concomitant]

REACTIONS (4)
  - Anxiety [None]
  - Headache [None]
  - Feeling abnormal [None]
  - Product substitution issue [None]

NARRATIVE: CASE EVENT DATE: 20150701
